FAERS Safety Report 23960565 (Version 1)
Quarter: 2024Q2

REPORT INFORMATION
  Report Type: Report from Study
  Country: IT (occurrence: IT)
  Receive Date: 20240611
  Receipt Date: 20240611
  Transmission Date: 20240717
  Serious: No
  Sender: FDA-Public Use
  Company Number: IT-SANDOZ-SDZ2024IT056385

PATIENT
  Age: 44 Year
  Sex: Male
  Weight: 108 kg

DRUGS (1)
  1. SOMATROPIN [Suspect]
     Active Substance: SOMATROPIN
     Indication: Growth hormone deficiency
     Dosage: 0.2 MG, QD
     Route: 058
     Dates: start: 20211108

REACTIONS (3)
  - Therapy interrupted [Unknown]
  - Device occlusion [Unknown]
  - Device mechanical issue [Unknown]

NARRATIVE: CASE EVENT DATE: 20240604
